FAERS Safety Report 5550944-2 (Version None)
Quarter: 2007Q4

REPORT INFORMATION
  Report Type: 
  Country: None (occurrence: None)
  Receive Date: 20071128
  Receipt Date: 20070913
  Transmission Date: 20080405
  Serious: Yes (Other)
  Sender: FDA-Public Use
  Company Number: 2007077488

PATIENT
  Age: 81 Year
  Sex: Female
  Weight: 61.2 kg

DRUGS (2)
  1. LIPITOR [Suspect]
     Indication: BLOOD CHOLESTEROL INCREASED
     Dosage: 10 MG (10 MG, 1 IN 1 D), ORAL
     Route: 048
     Dates: start: 20070101, end: 20070801
  2. ALTACE [Concomitant]

REACTIONS (2)
  - JOINT SWELLING [None]
  - NEURALGIA [None]
